FAERS Safety Report 10359483 (Version 1)
Quarter: 2014Q3

REPORT INFORMATION
  Report Type: Spontaneous
  Country: US (occurrence: None)
  Receive Date: 20140801
  Receipt Date: 20140801
  Transmission Date: 20150326
  Serious: Yes (Other)
  Sender: FDA-Public Use
  Company Number: None

PATIENT
  Age: 49 Year
  Sex: Male
  Weight: 78.02 kg

DRUGS (1)
  1. ESZOPICLONE. [Suspect]
     Active Substance: ESZOPICLONE
     Indication: SLEEP DISORDER
     Dosage: 1 PILL AT BEDTIME TAKEN BY MOUTH
     Route: 048
     Dates: start: 20140717, end: 20140731

REACTIONS (2)
  - Blood glucose increased [None]
  - Product substitution issue [None]

NARRATIVE: CASE EVENT DATE: 20140725
